FAERS Safety Report 8582097-0 (Version None)
Quarter: 2012Q3

REPORT INFORMATION
  Report Type: 
  Country: None (occurrence: None)
  Receive Date: 20120809
  Receipt Date: 20120805
  Transmission Date: 20120928
  Serious: Yes (Hospitalization, Other)
  Sender: FDA-Public Use
  Company Number: PHEH2012US013278

PATIENT
  Sex: Female

DRUGS (2)
  1. GLUCOSAMINE [Concomitant]
  2. VOLTAREN [Suspect]
     Indication: PAIN
     Dosage: 3 TIMES A DAY

REACTIONS (5)
  - BIPOLAR I DISORDER [None]
  - DRUG INEFFECTIVE [None]
  - BIPOLAR DISORDER [None]
  - OSTEOARTHRITIS [None]
  - CONSTIPATION [None]
